FAERS Safety Report 19957754 (Version 1)
Quarter: 2021Q4

REPORT INFORMATION
  Report Type: Other
  Country: EG (occurrence: EG)
  Receive Date: 20211014
  Receipt Date: 20211014
  Transmission Date: 20220303
  Serious: Yes (Hospitalization, Other)
  Sender: FDA-Public Use
  Company Number: EG-MLMSERVICE-20211001-3139913-1

PATIENT
  Sex: Female

DRUGS (1)
  1. OXYGEN [Suspect]
     Active Substance: OXYGEN
     Indication: Product used for unknown indication
     Route: 045

REACTIONS (4)
  - Subcutaneous emphysema [Recovered/Resolved]
  - Pneumothorax [Recovered/Resolved]
  - Pneumoperitoneum [Recovered/Resolved]
  - Pneumomediastinum [Recovered/Resolved]
